FAERS Safety Report 23558810 (Version 1)
Quarter: 2024Q1

REPORT INFORMATION
  Report Type: Report from Study
  Country: CA (occurrence: CA)
  Receive Date: 20240223
  Receipt Date: 20240223
  Transmission Date: 20240410
  Serious: Yes (Hospitalization, Other)
  Sender: FDA-Public Use
  Company Number: CA-SAMSUNG BIOEPIS-SB-2023-18361

PATIENT
  Age: 20 Year
  Sex: Female

DRUGS (4)
  1. RENFLEXIS [Suspect]
     Active Substance: INFLIXIMAB-ABDA
     Indication: Crohn^s disease
     Route: 065
     Dates: start: 20200127
  2. RENFLEXIS [Suspect]
     Active Substance: INFLIXIMAB-ABDA
     Dosage: UNKNOWN
     Route: 065
  3. RENFLEXIS [Suspect]
     Active Substance: INFLIXIMAB-ABDA
     Dosage: UNKNOWN
     Route: 065
  4. RENFLEXIS [Suspect]
     Active Substance: INFLIXIMAB-ABDA
     Dosage: UNKNOWN
     Route: 065

REACTIONS (10)
  - Sinusitis [Recovered/Resolved]
  - Staphylococcal infection [Unknown]
  - Streptococcal infection [Unknown]
  - Skin lesion [Unknown]
  - Product use issue [Unknown]
  - Fibromyalgia [Unknown]
  - Neuralgia [Unknown]
  - Arthralgia [Not Recovered/Not Resolved]
  - Stomatitis [Unknown]
  - Abscess [Unknown]

NARRATIVE: CASE EVENT DATE: 20230702
